FAERS Safety Report 15061744 (Version 2)
Quarter: 2018Q2

REPORT INFORMATION
  Report Type: Spontaneous
  Country: CN (occurrence: CN)
  Receive Date: 20180625
  Receipt Date: 20180628
  Transmission Date: 20180711
  Serious: Yes (Other)
  Sender: FDA-Public Use
  Company Number: PHHY2018CN021817

PATIENT
  Age: 54 Year
  Sex: Female

DRUGS (9)
  1. GLIVEC [Suspect]
     Active Substance: IMATINIB MESYLATE
     Indication: CHRONIC MYELOID LEUKAEMIA
     Dosage: UNK
     Route: 048
     Dates: start: 2012, end: 20130116
  2. TASIGNA [Suspect]
     Active Substance: NILOTINIB
     Indication: CHRONIC MYELOID LEUKAEMIA
     Dosage: UNK
     Route: 048
     Dates: start: 20130107, end: 20130503
  3. POLYENE PHOSPHATIDYLCHOLINE [Concomitant]
     Active Substance: PHOSPHOLIPID
     Indication: PRODUCT USED FOR UNKNOWN INDICATION
     Dosage: 228 MG, TID
     Route: 048
     Dates: start: 20130514, end: 20130529
  4. TEICOPLANIN [Concomitant]
     Active Substance: TEICOPLANIN
     Indication: BACTERIAL INFECTION
     Dosage: 400 MG, QD
     Route: 041
     Dates: start: 20130509, end: 20130529
  5. URSOFALK [Concomitant]
     Active Substance: URSODIOL
     Indication: CHOLELITHIASIS
     Dosage: 250 MG, BID
     Route: 048
     Dates: start: 20130510, end: 20130529
  6. COENZYME Q10 [Concomitant]
     Active Substance: UBIDECARENONE
     Indication: PROPHYLAXIS
     Dosage: 10 MG, BID
     Route: 048
     Dates: start: 20130510, end: 20130529
  7. PHOSPHOCREATINE SODIUM [Concomitant]
     Active Substance: PHOSPHOCREATINE SODIUM
     Indication: PRODUCT USED FOR UNKNOWN INDICATION
     Dosage: 1 G, QD
     Route: 041
     Dates: start: 20130509, end: 20130529
  8. URSOFALK [Concomitant]
     Active Substance: URSODIOL
     Indication: CHOLESTASIS
  9. ACICLOVIR [Concomitant]
     Active Substance: ACYCLOVIR
     Indication: HERPES SIMPLEX
     Dosage: 500 MG, QD
     Route: 041
     Dates: start: 20130503, end: 20130507

REACTIONS (9)
  - Drug ineffective [Unknown]
  - Myelofibrosis [Unknown]
  - Anaemia [Unknown]
  - Tumour marker increased [Recovered/Resolved]
  - Bone marrow failure [Unknown]
  - Lymphopenia [Unknown]
  - Pruritus [Unknown]
  - Drug intolerance [Unknown]
  - Skin lesion [Unknown]

NARRATIVE: CASE EVENT DATE: 201301
